FAERS Safety Report 21407954 (Version 2)
Quarter: 2022Q4

REPORT INFORMATION
  Report Type: Report from Study
  Country: NZ (occurrence: NZ)
  Receive Date: 20221004
  Receipt Date: 20221010
  Transmission Date: 20230112
  Serious: Yes (Hospitalization)
  Sender: FDA-Public Use
  Company Number: NZ-Merck Healthcare KGaA-9339659

PATIENT
  Age: 62 Year
  Sex: Male

DRUGS (5)
  1. CETUXIMAB [Suspect]
     Active Substance: CETUXIMAB
     Indication: Colon cancer metastatic
     Dosage: 800 MG
     Route: 042
     Dates: start: 20220713
  2. DOXYCYCLINE [Suspect]
     Active Substance: DOXYCYCLINE
     Indication: Prophylaxis
     Dosage: 200 MG, DAILY
     Route: 048
     Dates: start: 20220713
  3. DOXYCYCLINE [Suspect]
     Active Substance: DOXYCYCLINE
     Dosage: 100 MG, DAILY
     Route: 048
     Dates: start: 20220830
  4. HYDROCORTISONE [Concomitant]
     Active Substance: HYDROCORTISONE
     Indication: Therapeutic skin care topical
     Dosage: UNK, QOD
     Route: 061
     Dates: start: 20220713, end: 20220830
  5. AQUEOUS [EMULSIFYING WAX;PARAFFIN, LIQUID;WHI [Concomitant]
     Indication: Therapeutic skin care topical
     Dosage: UNK, PRN
     Route: 061
     Dates: start: 20220713, end: 20220830

REACTIONS (4)
  - Symmetrical drug-related intertriginous and flexural exanthema [Recovered/Resolved]
  - Superinfection [Recovered/Resolved]
  - Dehydration [Unknown]
  - Off label use [Unknown]

NARRATIVE: CASE EVENT DATE: 20220830
